FAERS Safety Report 12876933 (Version 1)
Quarter: 2016Q4

REPORT INFORMATION
  Report Type: Spontaneous
  Country: US (occurrence: US)
  Receive Date: 20161021
  Receipt Date: 20161021
  Transmission Date: 20170207
  Serious: No
  Sender: FDA-Public Use
  Company Number: None

PATIENT
  Age: 65 Year
  Sex: Male

DRUGS (1)
  1. OTREXUP [Suspect]
     Active Substance: METHOTREXATE
     Indication: MYASTHENIA GRAVIS
     Route: 058
     Dates: start: 20160919

REACTIONS (2)
  - Swelling [None]
  - Peripheral swelling [None]

NARRATIVE: CASE EVENT DATE: 20161003
